FAERS Safety Report 5678342-1 (Version None)
Quarter: 2008Q1

REPORT INFORMATION
  Report Type: 
  Country: None (occurrence: None)
  Receive Date: 20080320
  Receipt Date: 20080312
  Transmission Date: 20080703
  Serious: Yes (Life-Threatening, Hospitalization)
  Sender: FDA-Public Use
  Company Number: APP200800191

PATIENT
  Age: 41 Year
  Sex: Female

DRUGS (2)
  1. DIPRIVAN [Suspect]
     Indication: ANAESTHESIA
     Dosage: INTRAVENOUS
     Route: 042
     Dates: start: 20070615, end: 20070615
  2. ZEMURON [Suspect]
     Indication: DRUG USE FOR UNKNOWN INDICATION
     Dates: start: 20070615

REACTIONS (6)
  - ANAPHYLACTIC REACTION [None]
  - ATRIAL FIBRILLATION [None]
  - CARDIO-RESPIRATORY ARREST [None]
  - HYPOTENSION [None]
  - POST PROCEDURAL COMPLICATION [None]
  - VENTRICULAR FIBRILLATION [None]
